FAERS Safety Report 4377996-X (Version None)
Quarter: 2004Q2

REPORT INFORMATION
  Report Type: 
  Country: None (occurrence: None)
  Receive Date: 20040616
  Receipt Date: 20040521
  Transmission Date: 20050107
  Serious: Yes (Death, Hospitalization, Other)
  Sender: FDA-Public Use
  Company Number: DE-BRISTOL-MYERS SQUIBB COMPANY-12594131

PATIENT
  Age: 73 Year
  Sex: Female
  Weight: 56 kg

DRUGS (2)
  1. PACLITAXEL [Suspect]
     Indication: OVARIAN CANCER
     Route: 042
     Dates: start: 20040504, end: 20040504
  2. RIBOCARBO [Suspect]
     Indication: OVARIAN CANCER
     Route: 042
     Dates: start: 20040504, end: 20040504

REACTIONS (5)
  - APHASIA [None]
  - CEREBRAL HAEMORRHAGE [None]
  - CEREBRAL ISCHAEMIA [None]
  - ILEUS [None]
  - LOSS OF CONSCIOUSNESS [None]
